FAERS Safety Report 12434691 (Version 5)
Quarter: 2016Q3

REPORT INFORMATION
  Report Type: Spontaneous
  Country: US (occurrence: US)
  Receive Date: 20160603
  Receipt Date: 20160922
  Transmission Date: 20161109
  Serious: Yes (Other)
  Sender: FDA-Public Use
  Company Number: US-CELGENEUS-USA-2016057173

PATIENT
  Age: 64 Year
  Sex: Female

DRUGS (5)
  1. VASOTEC [Concomitant]
     Active Substance: ENALAPRIL MALEATE
     Indication: DEPRESSION
     Route: 065
     Dates: start: 2011
  2. WELLBUTRIN [Concomitant]
     Active Substance: BUPROPION HYDROCHLORIDE
     Indication: DEPRESSION
     Route: 065
     Dates: start: 2011
  3. OTEZLA [Suspect]
     Active Substance: APREMILAST
     Indication: ECZEMA
  4. HYDROCHLOROTHIAZIDE. [Concomitant]
     Active Substance: HYDROCHLOROTHIAZIDE
     Indication: HYPERTENSION
     Route: 065
     Dates: start: 2010
  5. OTEZLA [Suspect]
     Active Substance: APREMILAST
     Indication: PSORIASIS
     Dosage: 60 MILLIGRAM
     Route: 048
     Dates: start: 201605

REACTIONS (5)
  - Psoriasis [Recovered/Resolved]
  - Headache [Not Recovered/Not Resolved]
  - Eczema [Not Recovered/Not Resolved]
  - Nausea [Recovering/Resolving]
  - Decreased appetite [Not Recovered/Not Resolved]

NARRATIVE: CASE EVENT DATE: 201605
